FAERS Safety Report 8292687-0 (Version None)
Quarter: 2012Q2

REPORT INFORMATION
  Report Type: 
  Country: None (occurrence: None)
  Receive Date: 20120417
  Receipt Date: 20110405
  Transmission Date: 20120825
  Serious: No
  Sender: FDA-Public Use
  Company Number: US-ASTRAZENECA-2011SE19469

PATIENT
  Age: 50 Year
  Sex: Female
  Weight: 47.6 kg

DRUGS (4)
  1. NEXIUM [Suspect]
     Indication: GASTROOESOPHAGEAL REFLUX DISEASE
     Route: 048
     Dates: end: 20100101
  2. SYNTHROID [Concomitant]
  3. NEXIUM [Suspect]
     Route: 048
  4. CALCIUM WITH VITAMIN D [Concomitant]

REACTIONS (3)
  - OSTEOPOROSIS [None]
  - DRUG DOSE OMISSION [None]
  - DYSPEPSIA [None]
